FAERS Safety Report 9424866 (Version 1)
Quarter: 2013Q3

REPORT INFORMATION
  Report Type: Spontaneous
  Country: US (occurrence: US)
  Receive Date: 20130729
  Receipt Date: 20130729
  Transmission Date: 20140515
  Serious: No
  Sender: FDA-Public Use
  Company Number: US-PFIZER INC-2013217578

PATIENT
  Age: 62 Year
  Sex: Male
  Weight: 136 kg

DRUGS (5)
  1. TIKOSYN [Suspect]
     Indication: ATRIAL FIBRILLATION
     Dosage: 250 MG, 2X/DAY
     Route: 048
  2. LEVAQUIN [Suspect]
     Dosage: UNK
     Route: 048
  3. LOTREL [Concomitant]
     Indication: HYPERTENSION
     Dosage: AMLODIPINE 5MG/ BENAZEPRIL HYDROCHLORIDE 20MG, 1X/DAY
     Route: 048
  4. METOPROLOL [Concomitant]
     Indication: HYPERTENSION
     Dosage: 50 MG, 2X/DAY
     Route: 048
  5. SYNTHROID [Concomitant]
     Indication: THYROID DISORDER
     Dosage: UNK
     Route: 048

REACTIONS (7)
  - Feeling abnormal [Unknown]
  - Chest discomfort [Unknown]
  - Heart rate abnormal [Unknown]
  - Weight increased [Not Recovered/Not Resolved]
  - Fatigue [Not Recovered/Not Resolved]
  - Asthenia [Not Recovered/Not Resolved]
  - Pollakiuria [Not Recovered/Not Resolved]
